FAERS Safety Report 4362128-4 (Version None)
Quarter: 2004Q2

REPORT INFORMATION
  Report Type: 
  Country: None (occurrence: None)
  Receive Date: 20040517
  Receipt Date: 20040503
  Transmission Date: 20050107
  Serious: No
  Sender: FDA-Public Use
  Company Number: TPA2004A00286

PATIENT
  Age: 61 Year
  Sex: Male

DRUGS (4)
  1. ACTOS [Suspect]
     Indication: DIABETES MELLITUS
     Dosage: PER ORAL
     Route: 048
     Dates: start: 20010101
  2. GLUCOPHAGE [Concomitant]
  3. HUMALOG [Concomitant]
  4. LIPITOR [Concomitant]

REACTIONS (9)
  - ANEURYSM [None]
  - DIABETIC RETINOPATHY [None]
  - EYE HAEMORRHAGE [None]
  - MACULAR OEDEMA [None]
  - OPHTHALMOLOGICAL EXAMINATION ABNORMAL [None]
  - RETINAL EXUDATES [None]
  - RETINAL NEOVASCULARISATION [None]
  - WEIGHT DECREASED [None]
  - WEIGHT INCREASED [None]
